FAERS Safety Report 7397884-4 (Version None)
Quarter: 2011Q2

REPORT INFORMATION
  Report Type: 
  Country: None (occurrence: None)
  Receive Date: 20110406
  Receipt Date: 20110404
  Transmission Date: 20111010
  Serious: Yes (Other)
  Sender: FDA-Public Use
  Company Number: GR-SHIRE-SPV1-2011-00444

PATIENT
  Age: 56 Year
  Sex: Female

DRUGS (1)
  1. XAGRID [Suspect]
     Indication: ESSENTIAL THROMBOCYTHAEMIA
     Dosage: 0.5 MG BID /0.5 MG TID
     Route: 048
     Dates: start: 20061213, end: 20101208

REACTIONS (1)
  - MYELOFIBROSIS [None]
